FAERS Safety Report 25332303 (Version 1)
Quarter: 2025Q2

REPORT INFORMATION
  Report Type: Spontaneous
  Country: US (occurrence: None)
  Receive Date: 20250519
  Receipt Date: 20250519
  Transmission Date: 20250716
  Serious: Yes (Hospitalization)
  Sender: FDA-CTU
  Company Number: None

PATIENT
  Age: 43 Year
  Sex: Female
  Weight: 87.7 kg

DRUGS (1)
  1. ENFORTUMAB VEDOTIN [Suspect]
     Active Substance: ENFORTUMAB VEDOTIN
     Indication: Rectal adenocarcinoma
     Route: 042
     Dates: start: 20250417

REACTIONS (4)
  - Blood lactic acid abnormal [None]
  - Sepsis [None]
  - Staphylococcal infection [None]
  - Device related infection [None]

NARRATIVE: CASE EVENT DATE: 20250507
